FAERS Safety Report 7178428-9 (Version None)
Quarter: 2010Q4

REPORT INFORMATION
  Report Type: 
  Country: None (occurrence: None)
  Receive Date: 20101220
  Receipt Date: 20101208
  Transmission Date: 20110411
  Serious: Yes (Life-Threatening, Hospitalization)
  Sender: FDA-Public Use
  Company Number: US-WATSON-2010-16139

PATIENT
  Age: 47 Year
  Sex: Male

DRUGS (1)
  1. TRAMADOL HCL [Suspect]
     Indication: INTENTIONAL OVERDOSE
     Dosage: 3000 MG, UNKNOWN
     Route: 048

REACTIONS (4)
  - ELECTROCARDIOGRAM ABNORMAL [None]
  - HYPOVENTILATION [None]
  - INTENTIONAL OVERDOSE [None]
  - MENTAL STATUS CHANGES [None]
